FAERS Safety Report 25771293 (Version 1)
Quarter: 2025Q3

REPORT INFORMATION
  Report Type: Spontaneous
  Country: US (occurrence: US)
  Receive Date: 20250908
  Receipt Date: 20250908
  Transmission Date: 20251021
  Serious: No
  Sender: DOMPE FARMACEUTICI
  Company Number: US-FARMAPROD-202504-1172

PATIENT
  Sex: Male

DRUGS (15)
  1. OXERVATE [Suspect]
     Active Substance: CENEGERMIN-BKBJ
     Indication: Neurotrophic keratopathy
     Route: 047
  2. RITUXAN [Concomitant]
     Active Substance: RITUXIMAB
  3. BACLOFEN [Concomitant]
     Active Substance: BACLOFEN
  4. REFRESH PLUS [Concomitant]
     Active Substance: CARBOXYMETHYLCELLULOSE SODIUM
  5. REFRESH CELLUVISC [Concomitant]
     Active Substance: CARBOXYMETHYLCELLULOSE SODIUM
  6. MOXIFLOXACIN [Concomitant]
     Active Substance: MOXIFLOXACIN
  7. PREDNISOLONE ACETATE [Concomitant]
     Active Substance: PREDNISOLONE ACETATE
  8. POLYMYXIN B SUL-TRIMETHOPRIM [Concomitant]
  9. ASPIRIN [Concomitant]
     Active Substance: ASPIRIN
  10. PREDNISONE [Concomitant]
     Active Substance: PREDNISONE
  11. SEROQUEL [Concomitant]
     Active Substance: QUETIAPINE FUMARATE
  12. ISOSORBIDE MONONITRATE [Concomitant]
     Active Substance: ISOSORBIDE MONONITRATE
  13. METFORMIN HYDROCHLORIDE [Concomitant]
     Active Substance: METFORMIN HYDROCHLORIDE
  14. LOSARTAN POTASSIUM [Concomitant]
     Active Substance: LOSARTAN POTASSIUM
  15. ATORVASTATIN CALCIUM [Concomitant]
     Active Substance: ATORVASTATIN CALCIUM

REACTIONS (1)
  - Eyelid oedema [Unknown]
